FAERS Safety Report 7222793-0 (Version None)
Quarter: 2011Q1

REPORT INFORMATION
  Report Type: 
  Country: None (occurrence: None)
  Receive Date: 20110112
  Receipt Date: 20110107
  Transmission Date: 20110831
  Serious: Yes (Life-Threatening)
  Sender: FDA-Public Use
  Company Number: IT-ROXANE LABORATORIES, INC.-2011-RO-00040RO

PATIENT
  Age: 33 Year
  Sex: Male

DRUGS (2)
  1. LIDOCAINE HYDROCHLORIDE IN PLASTIC CONTAINER [Suspect]
     Indication: LOCAL ANAESTHESIA
  2. MIDAZOLAM HCL [Suspect]
     Indication: SEDATION
     Route: 042

REACTIONS (2)
  - ACUTE RESPIRATORY DISTRESS SYNDROME [None]
  - NON-CARDIOGENIC PULMONARY OEDEMA [None]
